FAERS Safety Report 5782179-2 (Version None)
Quarter: 2008Q2

REPORT INFORMATION
  Report Type: 
  Country: None (occurrence: None)
  Receive Date: 20080623
  Receipt Date: 20080616
  Transmission Date: 20081010
  Serious: Yes (Hospitalization)
  Sender: FDA-Public Use
  Company Number: SE-SANOFI-SYNTHELABO-A01200806864

PATIENT
  Sex: Female

DRUGS (4)
  1. AVASTIN [Concomitant]
     Dosage: UNK
  2. FLUOROURACIL [Concomitant]
     Dosage: UNK
  3. ELOXATIN [Suspect]
     Indication: RECTAL CANCER
     Dosage: UNK
     Route: 042
  4. RADIOTHERAPY [Concomitant]
     Dosage: UNK

REACTIONS (1)
  - RESPIRATORY FAILURE [None]
